FAERS Safety Report 7125573-X (Version None)
Quarter: 2010Q4

REPORT INFORMATION
  Report Type: 
  Country: None (occurrence: None)
  Receive Date: 20101129
  Receipt Date: 20101119
  Transmission Date: 20110411
  Serious: Yes (Disabling, Other)
  Sender: FDA-Public Use
  Company Number: US-PFIZER INC-2010153518

PATIENT
  Sex: Female
  Weight: 70.295 kg

DRUGS (3)
  1. ZOLOFT [Suspect]
     Indication: DEPRESSION
     Dosage: 50 MG, 1X/DAY
  2. SERTRALINE HYDROCHLORIDE [Suspect]
     Indication: DEPRESSION
     Dosage: UNK
  3. LORTAB [Concomitant]
     Dosage: UNK

REACTIONS (15)
  - ALVEOLAR OSTEITIS [None]
  - ANXIETY [None]
  - BACK DISORDER [None]
  - BACK PAIN [None]
  - DEPRESSION [None]
  - DRUG INEFFECTIVE [None]
  - ILEUS [None]
  - LYMPHOMA [None]
  - MUSCULOSKELETAL DISORDER [None]
  - SINUSITIS [None]
  - SLEEP DISORDER [None]
  - TOOTH ABSCESS [None]
  - TOOTH LOSS [None]
  - WEIGHT DECREASED [None]
  - WEIGHT INCREASED [None]
